FAERS Safety Report 22976310 (Version 3)
Quarter: 2023Q4

REPORT INFORMATION
  Report Type: Spontaneous
  Country: PK (occurrence: PK)
  Receive Date: 20230925
  Receipt Date: 20231008
  Transmission Date: 20240110
  Serious: Yes (Other)
  Sender: FDA-Public Use
  Company Number: PK-PFIZER INC-PV202300125223

PATIENT
  Age: 24 Year
  Sex: Female

DRUGS (9)
  1. ENBREL [Suspect]
     Active Substance: ETANERCEPT
     Indication: Psoriatic arthropathy
     Dosage: 50 MG, WEEKLY
     Route: 058
     Dates: start: 20230724
  2. METHOTREXATE [Concomitant]
     Active Substance: METHOTREXATE
     Dosage: 10MG 1 TAB EVERY SUNDAY
     Route: 065
  3. METHOTREXATE [Concomitant]
     Active Substance: METHOTREXATE
     Dosage: 10 MG HALF TAB ON EVERY SUNDAY
     Route: 065
  4. SULFASALAZINE [Concomitant]
     Active Substance: SULFASALAZINE
     Dosage: 500 MG, 2X/DAY (MORNING, EVENING)
     Route: 065
  5. Tofajak [Concomitant]
     Dosage: 5 MG, MORNING
     Route: 065
  6. Rapicort [Concomitant]
     Dosage: 5 MG, 1+1 EVENING, MORNING-}AFTER 10 DAYS 1 TAB IN
     Route: 065
  7. Rapicort [Concomitant]
     Dosage: 5 MG HALF TAB IN MORNING
     Route: 065
  8. Dxl [Concomitant]
     Indication: Gastrointestinal disorder
     Dosage: 30 MG 1+0 MORNING
     Route: 065
  9. XOBIX [Concomitant]
     Dosage: 7.5 MG 1+0 MORNING
     Route: 065

REACTIONS (1)
  - Eosinophilia myalgia syndrome [Unknown]
